FAERS Safety Report 16702485 (Version 1)
Quarter: 2019Q3

REPORT INFORMATION
  Report Type: Spontaneous
  Country: US (occurrence: US)
  Receive Date: 20190813
  Receipt Date: 20190813
  Transmission Date: 20191004
  Serious: Yes (Other)
  Sender: FDA-Public Use
  Company Number: None

PATIENT
  Age: 36 Year
  Sex: Female
  Weight: 106.2 kg

DRUGS (1)
  1. METOPROLOL SUCC ER 25 MG TAB, UU, 25 MG [Suspect]
     Active Substance: METOPROLOL SUCCINATE
     Indication: HYPERTENSION
     Dosage: ?          QUANTITY:30 TABLET(S);?
     Dates: start: 20190524, end: 20190525

REACTIONS (1)
  - Photosensitivity reaction [None]

NARRATIVE: CASE EVENT DATE: 20190525
